FAERS Safety Report 9200714 (Version 1)
Quarter: 2013Q2

REPORT INFORMATION
  Report Type: Report from Study
  Country: CO (occurrence: CO)
  Receive Date: 20130401
  Receipt Date: 20130401
  Transmission Date: 20140414
  Serious: Yes (Other)
  Sender: FDA-Public Use
  Company Number: CO-AMGEN-COLCT2013021832

PATIENT
  Age: 52 Year
  Sex: Female

DRUGS (5)
  1. ETANERCEPT [Suspect]
     Indication: RHEUMATOID ARTHRITIS
     Dosage: 50 MG, QWK
     Route: 058
     Dates: start: 2008
  2. ETANERCEPT [Suspect]
     Dosage: 50 MG, QWK
     Route: 058
     Dates: start: 2010, end: 201301
  3. PARACETAMOL WITH CODEINE PHOSPHATE [Concomitant]
     Indication: ARTHRALGIA
     Dosage: 500 MG, UNK
     Route: 065
     Dates: start: 2011
  4. CALCIUM [Concomitant]
     Dosage: UNK
     Route: 065
     Dates: start: 2011
  5. OMEPRAZOL                          /00661201/ [Concomitant]
     Dosage: UNK
     Route: 065
     Dates: start: 2011

REACTIONS (5)
  - Dermatitis [Recovered/Resolved]
  - Urticaria [Not Recovered/Not Resolved]
  - Cough [Not Recovered/Not Resolved]
  - Wound infection [Recovered/Resolved]
  - Infection [Not Recovered/Not Resolved]
